FAERS Safety Report 5290699-2 (Version None)
Quarter: 2007Q2

REPORT INFORMATION
  Report Type: 
  Country: None (occurrence: None)
  Receive Date: 20070405
  Receipt Date: 20070405
  Transmission Date: 20071010
  Serious: Yes (Hospitalization)
  Sender: FDA-Public Use
  Company Number: None

PATIENT
  Age: 69 Year
  Sex: Male

DRUGS (12)
  1. WARFARIN SODIUM [Suspect]
     Indication: ATRIAL FIBRILLATION
     Dosage: 2.5 MG PO QD
     Route: 048
     Dates: start: 20061022, end: 20061030
  2. FLUTICASONE/SALMETEROL [Concomitant]
  3. ALBUTEROL [Concomitant]
  4. DIGOXIN [Concomitant]
  5. AMIODARONE HCL [Concomitant]
  6. ESCITALOPRAM [Concomitant]
  7. TIOTROPIUM [Concomitant]
  8. RANITIDINE [Concomitant]
  9. LEVOTHYROXINE SODIUM [Concomitant]
  10. LORATADINE [Concomitant]
  11. GUAIFENESIN [Concomitant]
  12. DICYCLOMINE [Concomitant]

REACTIONS (3)
  - HAEMOPTYSIS [None]
  - INTERNATIONAL NORMALISED RATIO INCREASED [None]
  - RECTAL HAEMORRHAGE [None]
